FAERS Safety Report 19454415 (Version 1)
Quarter: 2021Q2

REPORT INFORMATION
  Report Type: Spontaneous
  Country: AT (occurrence: AT)
  Receive Date: 20210623
  Receipt Date: 20210623
  Transmission Date: 20210717
  Serious: Yes (Other)
  Sender: FDA-Public Use
  Company Number: AT-ASTRAZENECA-2021A529490

PATIENT
  Age: 58 Year
  Sex: Female

DRUGS (4)
  1. DENOSUMAB [Concomitant]
     Active Substance: DENOSUMAB
     Indication: PRODUCT USED FOR UNKNOWN INDICATION
     Dosage: 120 MG, QMO (1X A MONTH)
  2. CLAVAMOX [Suspect]
     Active Substance: AMOXICILLIN\CLAVULANATE POTASSIUM
     Indication: PRODUCT USED FOR UNKNOWN INDICATION
     Dosage: 1 G, BID (2 X A DAY)
     Route: 065
  3. FULVESTRANT. [Suspect]
     Active Substance: FULVESTRANT
     Indication: BREAST CANCER METASTATIC
     Dosage: 500 MG, QMO (1X A MONTH)UNK
     Route: 030
  4. ALPELISIB [Suspect]
     Active Substance: ALPELISIB
     Indication: BREAST CANCER METASTATIC
     Dosage: 300 MG, QD
     Route: 065
     Dates: start: 202001

REACTIONS (17)
  - White blood cell count increased [Recovering/Resolving]
  - Dysgeusia [Unknown]
  - Pain in extremity [Recovering/Resolving]
  - Breast cancer metastatic [Recovering/Resolving]
  - Chills [Recovering/Resolving]
  - Rash [Unknown]
  - Bone lesion [Unknown]
  - Pyrexia [Recovering/Resolving]
  - Malignant neoplasm progression [Recovering/Resolving]
  - Blood glucose increased [Recovered/Resolved]
  - Weight decreased [Recovering/Resolving]
  - Diarrhoea [Unknown]
  - Stomatitis [Unknown]
  - C-reactive protein increased [Recovering/Resolving]
  - Hyperglycaemia [Unknown]
  - Pollakiuria [Recovering/Resolving]
  - Dyspnoea exertional [Unknown]

NARRATIVE: CASE EVENT DATE: 202001
